FAERS Safety Report 5733678-0 (Version None)
Quarter: 2008Q2

REPORT INFORMATION
  Report Type: 
  Country: None (occurrence: None)
  Receive Date: 20080509
  Receipt Date: 20080314
  Transmission Date: 20081010
  Serious: No
  Sender: FDA-Public Use
  Company Number: A0715523A

PATIENT
  Age: 58 Year
  Sex: Female

DRUGS (3)
  1. ALTABAX [Suspect]
     Indication: STAPHYLOCOCCAL INFECTION
     Route: 061
     Dates: start: 20080228, end: 20080228
  2. SYNTHROID [Concomitant]
  3. PRILOSEC [Concomitant]

REACTIONS (3)
  - BLISTER [None]
  - PAIN [None]
  - SKIN DISCOLOURATION [None]
